FAERS Safety Report 8075007-6 (Version None)
Quarter: 2012Q1

REPORT INFORMATION
  Report Type: 
  Country: None (occurrence: None)
  Receive Date: 20120127
  Receipt Date: 20120119
  Transmission Date: 20120608
  Serious: No
  Sender: FDA-Public Use
  Company Number: US-BIOGENIDEC-2011BI048183

PATIENT
  Sex: Female

DRUGS (2)
  1. TYSABRI [Suspect]
     Indication: MULTIPLE SCLEROSIS
     Route: 042
     Dates: start: 20071010, end: 20101130
  2. TYSABRI [Suspect]
     Route: 042
     Dates: start: 20110325, end: 20111028

REACTIONS (2)
  - MULTIPLE SCLEROSIS [None]
  - DRUG INEFFECTIVE [None]
